FAERS Safety Report 21685807 (Version 3)
Quarter: 2024Q1

REPORT INFORMATION
  Report Type: Spontaneous
  Country: GR (occurrence: GR)
  Receive Date: 20221206
  Receipt Date: 20240327
  Transmission Date: 20240410
  Serious: Yes (Hospitalization, Other)
  Sender: FDA-Public Use
  Company Number: GR-BRISTOL-MYERS SQUIBB COMPANY-2022-146052

PATIENT
  Age: 74 Year
  Sex: Female

DRUGS (1)
  1. AZACITIDINE [Suspect]
     Active Substance: AZACITIDINE
     Indication: Myelodysplastic syndrome
     Dosage: 75 MG/M2/DAY SUBCUTANEOUSLY FOR 7 DAYS IN 28-DAY CYCLES
     Route: 058

REACTIONS (4)
  - Bacterial sepsis [Recovered/Resolved]
  - Bacillus infection [Recovered/Resolved]
  - Neutropenia [Unknown]
  - Device related infection [Recovered/Resolved]
